FAERS Safety Report 7124013-4 (Version None)
Quarter: 2010Q4

REPORT INFORMATION
  Report Type: 
  Country: None (occurrence: None)
  Receive Date: 20101126
  Receipt Date: 20101117
  Transmission Date: 20110411
  Serious: Yes (Hospitalization, Other)
  Sender: FDA-Public Use
  Company Number: US-PFIZER INC-2010124753

PATIENT
  Sex: Female
  Weight: 60.78 kg

DRUGS (6)
  1. LYRICA [Suspect]
     Indication: FIBROMYALGIA
     Dosage: 150 MG, 1X/DAY
     Dates: start: 20100325, end: 20100714
  2. DICLOFENAC [Concomitant]
     Dosage: 75 MG, 2X/DAY
  3. ULTRAM [Concomitant]
     Dosage: 50MG 2-3 A DAY
  4. ZEGERID [Concomitant]
  5. AMBIEN [Concomitant]
     Dosage: 12.5 MG DAILY
  6. ZANAFLEX [Concomitant]
     Dosage: 4 MG DAILY

REACTIONS (1)
  - DYSARTHRIA [None]
